FAERS Safety Report 9209866 (Version 1)
Quarter: 2012Q4

REPORT INFORMATION
  Report Type: 
  Country: BR (occurrence: BR)
  Receive Date: 20120903
  Receipt Date: 20120903
  Transmission Date: 20130627
  Serious: Yes (Hospitalization, Other)
  Sender: FDA-Public Use
  Company Number: PHHY2012BR075581

PATIENT
  Sex: Male

DRUGS (3)
  1. FORASEQ [Suspect]
     Indication: EMPHYSEMA
  2. ASPIRIN [Concomitant]
  3. CHOLESTEROL [Concomitant]

REACTIONS (6)
  - Emphysema [Recovering/Resolving]
  - Dyspnoea [Recovering/Resolving]
  - Malaise [Recovering/Resolving]
  - Cough [Recovering/Resolving]
  - Abasia [Recovering/Resolving]
  - Influenza [Recovering/Resolving]
